FAERS Safety Report 8820371 (Version 1)
Quarter: 2012Q4

REPORT INFORMATION
  Report Type: 
  Country: ES (occurrence: ES)
  Receive Date: 20121002
  Receipt Date: 20121002
  Transmission Date: 20130627
  Serious: Yes (Other)
  Sender: FDA-Public Use
  Company Number: ES-GENZYME-THYM-1003432

PATIENT
  Age: 42 Year
  Sex: Male

DRUGS (6)
  1. THYMOGLOBULINE [Suspect]
     Indication: RENAL TRANSPLANT
     Dosage: UNK
     Route: 065
     Dates: start: 20120122, end: 20120122
  2. TOBRAMYCIN [Suspect]
     Indication: ANTIBIOTIC PROPHYLAXIS
     Dosage: UNK
     Route: 042
     Dates: start: 20120122
  3. AMPICILLIN [Suspect]
     Indication: ANTIBIOTIC PROPHYLAXIS
     Dosage: UNK
     Route: 042
     Dates: start: 20120122, end: 20120122
  4. MANNITOL [Suspect]
     Indication: RENAL TRANSPLANT
     Dosage: UNK
     Route: 042
     Dates: start: 20120122, end: 20120122
  5. METHYLPREDNISOLONE [Concomitant]
     Indication: RENAL TRANSPLANT
     Dosage: UNK
     Route: 042
     Dates: start: 20120122
  6. HYDROCORTISONE [Concomitant]
     Indication: RENAL TRANSPLANT
     Dosage: 100 mg, UNK, 1 every 2 days
     Route: 042
     Dates: start: 20120122

REACTIONS (2)
  - Bronchospasm [Recovered/Resolved]
  - Pancreatitis acute [Recovered/Resolved]
